FAERS Safety Report 18491388 (Version 1)
Quarter: 2020Q4

REPORT INFORMATION
  Report Type: Spontaneous
  Country: MY (occurrence: MY)
  Receive Date: 20201111
  Receipt Date: 20201111
  Transmission Date: 20210114
  Serious: Yes (Other)
  Sender: FDA-Public Use
  Company Number: MY-FRESENIUS KABI-FK202011947

PATIENT
  Age: 63 Year
  Sex: Female

DRUGS (3)
  1. ADENOSINE INJECTION (MANUFACTURER UNKNOWN) [Suspect]
     Active Substance: ADENOSINE
     Indication: PRODUCT USED FOR UNKNOWN INDICATION
     Route: 022
  2. ADENOSINE INJECTION (MANUFACTURER UNKNOWN) [Suspect]
     Active Substance: ADENOSINE
     Route: 022
  3. ADENOSINE INJECTION (MANUFACTURER UNKNOWN) [Suspect]
     Active Substance: ADENOSINE
     Route: 022

REACTIONS (2)
  - Condition aggravated [Recovered/Resolved]
  - Coronary artery dissection [Recovered/Resolved]
